FAERS Safety Report 5229907-2 (Version None)
Quarter: 2007Q1

REPORT INFORMATION
  Report Type: 
  Country: None (occurrence: None)
  Receive Date: 20070206
  Receipt Date: 20060623
  Transmission Date: 20070707
  Serious: No
  Sender: FDA-Public Use
  Company Number: US-GLAXOSMITHKLINE-A0610168A

PATIENT
  Sex: Female

DRUGS (3)
  1. PAXIL [Suspect]
     Indication: NEURALGIA
     Dosage: 5MG PER DAY
     Route: 048
     Dates: start: 20060408
  2. CALCIUM [Concomitant]
  3. MULTI-VITAMIN [Concomitant]

REACTIONS (3)
  - DYSPEPSIA [None]
  - EXPIRED DRUG ADMINISTERED [None]
  - SOMNOLENCE [None]
